FAERS Safety Report 4352943-5 (Version None)
Quarter: 2004Q2

REPORT INFORMATION
  Report Type: 
  Country: None (occurrence: None)
  Receive Date: 20040429
  Receipt Date: 20040419
  Transmission Date: 20050107
  Serious: Yes (Death, Life-Threatening, Hospitalization, Other)
  Sender: FDA-Public Use
  Company Number: DE-SHR-04-024133

PATIENT
  Age: 40 Year
  Sex: Female
  Weight: 55 kg

DRUGS (2)
  1. CAMPATH [Suspect]
     Indication: PROPHYLAXIS AGAINST TRANSPLANT REJECTION
     Dosage: 20 MG/D , 1X/DAY, INTRAVENOUS
     Route: 042
     Dates: start: 20040324, end: 20040325
  2. TACROLIMUS (TACROLIMUS) [Concomitant]

REACTIONS (8)
  - BRAIN STEM HAEMORRHAGE [None]
  - BRAIN STEM ISCHAEMIA [None]
  - COAGULOPATHY [None]
  - LIVER TRANSPLANT REJECTION [None]
  - MULTI-ORGAN FAILURE [None]
  - NECROSIS ISCHAEMIC [None]
  - POST PROCEDURAL HAEMORRHAGE [None]
  - SUBARACHNOID HAEMORRHAGE [None]
